FAERS Safety Report 24575387 (Version 4)
Quarter: 2024Q4

REPORT INFORMATION
  Report Type: Report from Study
  Country: KR (occurrence: KR)
  Receive Date: 20241104
  Receipt Date: 20241126
  Transmission Date: 20250115
  Serious: Yes (Hospitalization)
  Sender: ASTELLAS
  Company Number: KR-ASTELLAS-2024-AER-014253

PATIENT
  Age: 78 Year
  Sex: Male
  Weight: 50 kg

DRUGS (16)
  1. ENFORTUMAB VEDOTIN-EJFV [Suspect]
     Active Substance: ENFORTUMAB VEDOTIN-EJFV
     Indication: Transitional cell carcinoma metastatic
     Dosage: 1.25(MG/KG), 60(MG) /QD /INTRAVENOUS INFUSION
     Route: 042
     Dates: start: 20240605
  2. ENFORTUMAB VEDOTIN-EJFV [Suspect]
     Active Substance: ENFORTUMAB VEDOTIN-EJFV
     Dosage: 1.25(MG/KG), 60(MG) /QD /INTRAVENOUS INFUSION
     Route: 042
     Dates: start: 20240612
  3. ENFORTUMAB VEDOTIN-EJFV [Suspect]
     Active Substance: ENFORTUMAB VEDOTIN-EJFV
     Dosage: 1.25(MG/KG), 60(MG) /QD /INTRAVENOUS INFUSION
     Route: 042
     Dates: start: 20240619
  4. ENFORTUMAB VEDOTIN-EJFV [Suspect]
     Active Substance: ENFORTUMAB VEDOTIN-EJFV
     Dosage: 1.25(MG/KG), 60(MG) /QD /INTRAVENOUS INFUSION
     Route: 042
     Dates: start: 20240703
  5. ENFORTUMAB VEDOTIN-EJFV [Suspect]
     Active Substance: ENFORTUMAB VEDOTIN-EJFV
     Dosage: 1.25(MG/KG), 60(MG) /QD /INTRAVENOUS INFUSION
     Route: 042
     Dates: start: 20240710
  6. ENFORTUMAB VEDOTIN-EJFV [Suspect]
     Active Substance: ENFORTUMAB VEDOTIN-EJFV
     Dosage: 1.25(MG/KG), 60(MG) /QD /INTRAVENOUS INFUSION
     Route: 042
     Dates: start: 20240717
  7. ENFORTUMAB VEDOTIN-EJFV [Suspect]
     Active Substance: ENFORTUMAB VEDOTIN-EJFV
     Dosage: 1.25(MG/KG), 60(MG) /QD /INTRAVENOUS INFUSION
     Route: 042
     Dates: start: 20240731
  8. ENFORTUMAB VEDOTIN-EJFV [Suspect]
     Active Substance: ENFORTUMAB VEDOTIN-EJFV
     Dosage: 1.25(MG/KG), 60(MG) /QD /INTRAVENOUS INFUSION
     Route: 042
     Dates: start: 20240807
  9. ENFORTUMAB VEDOTIN-EJFV [Suspect]
     Active Substance: ENFORTUMAB VEDOTIN-EJFV
     Dosage: 1.25(MG/KG), 60(MG) /QD /INTRAVENOUS INFUSION
     Route: 042
     Dates: start: 20240814
  10. ENFORTUMAB VEDOTIN-EJFV [Suspect]
     Active Substance: ENFORTUMAB VEDOTIN-EJFV
     Dosage: 1.25(MG/KG), 60(MG) /QD /INTRAVENOUS INFUSION
     Route: 042
     Dates: start: 20240828
  11. ENFORTUMAB VEDOTIN-EJFV [Suspect]
     Active Substance: ENFORTUMAB VEDOTIN-EJFV
     Dosage: 1.25(MG/KG), 60(MG) /QD /INTRAVENOUS INFUSION
     Route: 042
     Dates: start: 20240903
  12. ENFORTUMAB VEDOTIN-EJFV [Suspect]
     Active Substance: ENFORTUMAB VEDOTIN-EJFV
     Dosage: 1.25(MG/KG), 60(MG) /QD /INTRAVENOUS INFUSION
     Route: 042
     Dates: start: 20240910
  13. ENFORTUMAB VEDOTIN-EJFV [Suspect]
     Active Substance: ENFORTUMAB VEDOTIN-EJFV
     Dosage: 1.0(MG/KG), 49.5(MG) /QD /INTRAVENOUS INFUSION
     Route: 042
     Dates: start: 20240924
  14. ENFORTUMAB VEDOTIN-EJFV [Suspect]
     Active Substance: ENFORTUMAB VEDOTIN-EJFV
     Dosage: 1.0(MG/KG), 49.5(MG) /QD /INTRAVENOUS INFUSION
     Route: 042
     Dates: start: 20240930
  15. ENFORTUMAB VEDOTIN-EJFV [Suspect]
     Active Substance: ENFORTUMAB VEDOTIN-EJFV
     Dosage: 1.0(MG/KG), 49.5(MG) /QD /INTRAVENOUS INFUSION
     Route: 042
     Dates: start: 20241007
  16. ENFORTUMAB VEDOTIN-EJFV [Suspect]
     Active Substance: ENFORTUMAB VEDOTIN-EJFV
     Dosage: 0(MG/KG), 0(MG) /QD /INTRAVENOUS INFUSION
     Route: 042
     Dates: start: 20241022

REACTIONS (3)
  - Acute kidney injury [Recovered/Resolved]
  - Anaemia [Recovered/Resolved]
  - Urinary bladder haematoma [Recovered/Resolved]

NARRATIVE: CASE EVENT DATE: 20241021
